FAERS Safety Report 16202743 (Version 2)
Quarter: 2019Q2

REPORT INFORMATION
  Report Type: Spontaneous
  Country: US (occurrence: US)
  Receive Date: 20190416
  Receipt Date: 20190507
  Transmission Date: 20190711
  Serious: No
  Sender: FDA-Public Use
  Company Number: US-PFIZER INC-2019153625

PATIENT
  Sex: Female

DRUGS (1)
  1. NEURONTIN [Suspect]
     Active Substance: GABAPENTIN
     Dosage: 2700 MG, DAILY (TAKES 9 300 MG CAPSULES A DAY)

REACTIONS (2)
  - Somnolence [Unknown]
  - Dizziness [Unknown]
